FAERS Safety Report 7723817-4 (Version None)
Quarter: 2011Q3

REPORT INFORMATION
  Report Type: 
  Country: None (occurrence: None)
  Receive Date: 20110826
  Receipt Date: 20110811
  Transmission Date: 20111222
  Serious: Yes (Other)
  Sender: FDA-Public Use
  Company Number: 2011P1008212

PATIENT
  Age: 73 Year
  Sex: Female
  Weight: 78.9259 kg

DRUGS (7)
  1. ASPIRIN [Concomitant]
  2. XANAX [Concomitant]
  3. OMEPRAZOLE [Concomitant]
  4. FENTANYL-75 [Suspect]
     Indication: PAIN
     Dosage: 1 PATCH;Q72H;TDER
  5. PLAVIX [Concomitant]
  6. MAGNESIUM [Concomitant]
  7. ATENOLOL [Concomitant]

REACTIONS (7)
  - ABDOMINAL PAIN UPPER [None]
  - PRURITUS [None]
  - INCORRECT DRUG ADMINISTRATION DURATION [None]
  - FALL [None]
  - PRODUCT ADHESION ISSUE [None]
  - NAUSEA [None]
  - PRODUCT SUBSTITUTION ISSUE [None]
